FAERS Safety Report 24653943 (Version 2)
Quarter: 2024Q4

REPORT INFORMATION
  Report Type: Report from Study
  Country: US (occurrence: US)
  Receive Date: 20241122
  Receipt Date: 20241209
  Transmission Date: 20250114
  Serious: Yes (Disabling, Other)
  Sender: ABBVIE
  Company Number: US-ABBVIE-6010550

PATIENT
  Age: 62 Year
  Sex: Female
  Weight: 86.182 kg

DRUGS (4)
  1. SKYRIZI [Suspect]
     Active Substance: RISANKIZUMAB-RZAA
     Indication: Crohn^s disease
     Route: 058
     Dates: start: 202403
  2. MYCOPHENOLIC ACID [Concomitant]
     Active Substance: MYCOPHENOLIC ACID
     Indication: Sjogren^s syndrome
  3. PROTONIX [Concomitant]
     Active Substance: PANTOPRAZOLE SODIUM
     Indication: Gastrooesophageal reflux disease
  4. SILDENAFIL [Concomitant]
     Active Substance: SILDENAFIL
     Indication: Raynaud^s phenomenon

REACTIONS (6)
  - Ankle fracture [Recovering/Resolving]
  - Fall [Recovered/Resolved]
  - Investigation abnormal [Unknown]
  - Radius fracture [Recovering/Resolving]
  - Pleurisy [Recovered/Resolved]
  - Pleural effusion [Recovered/Resolved]

NARRATIVE: CASE EVENT DATE: 20240101
